FAERS Safety Report 9411655 (Version 2)
Quarter: 2013Q3

REPORT INFORMATION
  Report Type: Spontaneous
  Country: DE (occurrence: DE)
  Receive Date: 20130722
  Receipt Date: 20130725
  Transmission Date: 20140515
  Serious: Yes (Life-Threatening, Hospitalization, Other)
  Sender: FDA-Public Use
  Company Number: DE-SHIRE-ALL1-2013-04806

PATIENT
  Age: 29 Year
  Sex: Female
  Weight: 73 kg

DRUGS (3)
  1. 426 (MIDODRINE) [Suspect]
     Indication: PRODUCT USED FOR UNKNOWN INDICATION
     Dosage: MAXIMUM 30 DF, ONE DOSE
     Route: 048
     Dates: start: 20130709, end: 20130709
  2. OPIPRAMOL [Suspect]
     Indication: SLEEP DISORDER
     Dosage: MORE THAN 70 TABLETS, ONE DOSE
     Route: 065
     Dates: start: 20130709, end: 20130709
  3. OPIPRAMOL [Suspect]
     Dosage: 100 MG, UNKNOWN
     Route: 065

REACTIONS (5)
  - Suicide attempt [Unknown]
  - Intentional overdose [Unknown]
  - Bradycardia [Recovered/Resolved]
  - Vomiting [Recovered/Resolved]
  - Drug diversion [Unknown]
